FAERS Safety Report 13362643 (Version 4)
Quarter: 2018Q1

REPORT INFORMATION
  Report Type: Spontaneous
  Country: US (occurrence: US)
  Receive Date: 20170323
  Receipt Date: 20180110
  Transmission Date: 20180508
  Serious: Yes (Other)
  Sender: FDA-Public Use
  Company Number: US-PFIZER INC-2017127378

PATIENT
  Age: 77 Year
  Sex: Female
  Weight: 90.7 kg

DRUGS (11)
  1. METFORMIN [Concomitant]
     Active Substance: METFORMIN HYDROCHLORIDE
     Dosage: UNK
  2. PLAVIX [Concomitant]
     Active Substance: CLOPIDOGREL BISULFATE
     Dosage: UNK
  3. REQUIP [Concomitant]
     Active Substance: ROPINIROLE HYDROCHLORIDE
     Indication: RESTLESS LEGS SYNDROME
     Dosage: 2 MG, 4X/DAY
     Route: 048
     Dates: start: 2014
  4. LYRICA [Suspect]
     Active Substance: PREGABALIN
     Indication: NEUROPATHY PERIPHERAL
     Dosage: 400 MG, DAILY (TAKE TWO AT NIGHT)
     Dates: start: 2015
  5. LYRICA [Suspect]
     Active Substance: PREGABALIN
     Indication: FIBROMYALGIA
     Dosage: 400 MG, DAILY (1 CAPSULE TWICE A DAY AND 2 AT BEDTIME 30 DAYS)
  6. FOLIC ACID. [Concomitant]
     Active Substance: FOLIC ACID
     Dosage: UNK
  7. PREDNISONE. [Concomitant]
     Active Substance: PREDNISONE
     Dosage: UNK
  8. ALENDRONATE [Concomitant]
     Active Substance: ALENDRONATE SODIUM
     Dosage: UNK
  9. LISINOPRIL. [Concomitant]
     Active Substance: LISINOPRIL
     Dosage: UNK
  10. TRAZODONE [Concomitant]
     Active Substance: TRAZODONE HYDROCHLORIDE
     Dosage: UNK
  11. LYRICA [Suspect]
     Active Substance: PREGABALIN
     Indication: ARTHRITIS
     Dosage: 400 MG, DAILY (100 MG CAPSULES, ONE IN THE MORNING, ONE AT NOON AND TWO AT NIGHT)
     Route: 048
     Dates: start: 2015

REACTIONS (7)
  - Dizziness [Unknown]
  - Pain [Unknown]
  - Somnolence [Unknown]
  - Upper limb fracture [Not Recovered/Not Resolved]
  - Alopecia [Unknown]
  - Peripheral swelling [Unknown]
  - Therapeutic response unexpected [Unknown]

NARRATIVE: CASE EVENT DATE: 20171113
